FAERS Safety Report 16768550 (Version 1)
Quarter: 2019Q3

REPORT INFORMATION
  Report Type: Spontaneous
  Country: US (occurrence: US)
  Receive Date: 20190903
  Receipt Date: 20190903
  Transmission Date: 20191005
  Serious: Yes (Other)
  Sender: FDA-Public Use
  Company Number: US-TEVA-2019-US-1101519

PATIENT
  Age: 92 Year
  Sex: Female

DRUGS (24)
  1. DHEA [Concomitant]
     Active Substance: PRASTERONE
  2. VITAMIN D3 [Concomitant]
     Active Substance: CHOLECALCIFEROL
  3. OMEGA 3 [Concomitant]
     Active Substance: OMEGA-3 FATTY ACIDS
  4. ACETYLCYST [Concomitant]
  5. RIBOFLAVIN [Concomitant]
     Active Substance: RIBOFLAVIN
  6. MAGNESIUM [Concomitant]
     Active Substance: MAGNESIUM
  7. VITAMIN E [Concomitant]
     Active Substance: .ALPHA.-TOCOPHEROL
  8. VITAMIN B12 [Concomitant]
     Active Substance: CYANOCOBALAMIN
  9. MELATONIN [Concomitant]
     Active Substance: MELATONIN
  10. SYNRIBO [Suspect]
     Active Substance: OMACETAXINE MEPESUCCINATE
     Indication: CHRONIC MYELOID LEUKAEMIA
     Dosage: 2.0 MG/0.57 ML TWICE A DAY FOR 14 DAYS
     Dates: start: 20190802
  11. XARELTO [Concomitant]
     Active Substance: RIVAROXABAN
  12. ARMOUR THYROID [Concomitant]
     Active Substance: THYROID, PORCINE
  13. COENZYME Q10 [Concomitant]
     Active Substance: UBIDECARENONE
  14. PROBIOTIC [Concomitant]
     Active Substance: PROBIOTICS NOS
  15. WHEY PROTEIN [Concomitant]
     Active Substance: WHEY
  16. HOMOCYSTEINE SUPPORT [Concomitant]
  17. SELENIUM [Concomitant]
     Active Substance: SELENIUM
  18. LATANOPROST. [Concomitant]
     Active Substance: LATANOPROST
  19. COLOSTRUM [Concomitant]
     Active Substance: DIETARY SUPPLEMENT
  20. METOPROLOL. [Concomitant]
     Active Substance: METOPROLOL
  21. VITAMIN C [Concomitant]
     Active Substance: ASCORBIC ACID
  22. METHOCARBAM [Concomitant]
     Active Substance: METHOCARBAMOL
  23. MILK THISTLE [Concomitant]
     Active Substance: DIETARY SUPPLEMENT\HERBALS\MILK THISTLE
  24. RESVERATROL [Concomitant]
     Active Substance: DIETARY SUPPLEMENT\RESVERATROL

REACTIONS (1)
  - Transfusion [Unknown]

NARRATIVE: CASE EVENT DATE: 20190822
